FAERS Safety Report 18604452 (Version 6)
Quarter: 2021Q1

REPORT INFORMATION
  Report Type: Report from Study
  Country: FR (occurrence: FR)
  Receive Date: 20201211
  Receipt Date: 20210311
  Transmission Date: 20210419
  Serious: Yes (Hospitalization)
  Sender: FDA-Public Use
  Company Number: NVSC2020FR326134

PATIENT
  Age: 1 Year
  Sex: Female
  Weight: 9.4 kg

DRUGS (8)
  1. SOLUPRED [Concomitant]
     Dosage: 2.5 MG
     Route: 065
     Dates: start: 20210111, end: 20210117
  2. SOLUPRED [Concomitant]
     Indication: PRODUCT USED FOR UNKNOWN INDICATION
     Dosage: 10 MG (1MG/KG)
     Route: 048
     Dates: start: 20201123, end: 20201128
  3. SOLUPRED [Concomitant]
     Dosage: 2 MG/KG
     Route: 065
     Dates: start: 20201129, end: 20201202
  4. SOLU?MEDROL [Concomitant]
     Active Substance: METHYLPREDNISOLONE SODIUM SUCCINATE
     Indication: PRODUCT USED FOR UNKNOWN INDICATION
     Dosage: 2 MG/KG
     Route: 042
     Dates: start: 20201129, end: 20201202
  5. ZOLGENSMA [Suspect]
     Active Substance: ONASEMNOGENE ABEPARVOVEC-XIOI
     Indication: SPINAL MUSCULAR ATROPHY
     Dosage: 52.5 ML (105X1013 COPIES)
     Route: 042
     Dates: start: 20201124
  6. SOLUPRED [Concomitant]
     Dosage: 7.5 MG
     Route: 065
     Dates: start: 20201228, end: 20210103
  7. SOLUPRED [Concomitant]
     Dosage: 5 MG
     Route: 065
     Dates: start: 20210104, end: 20210110
  8. SOLUPRED [Concomitant]
     Dosage: 1 MG/KG
     Route: 048
     Dates: start: 20201203

REACTIONS (17)
  - Monocyte count increased [Unknown]
  - Pyrexia [Recovering/Resolving]
  - Mean cell haemoglobin concentration increased [Not Recovered/Not Resolved]
  - Nausea [Unknown]
  - Haematocrit increased [Not Recovered/Not Resolved]
  - Constipation [Unknown]
  - Cell death [Recovering/Resolving]
  - Escherichia test positive [Recovering/Resolving]
  - Platelet count decreased [Recovering/Resolving]
  - Transaminases increased [Recovering/Resolving]
  - Haemoglobin increased [Not Recovered/Not Resolved]
  - Decreased appetite [Recovering/Resolving]
  - Vomiting [Recovering/Resolving]
  - Blood lactate dehydrogenase increased [Recovering/Resolving]
  - Red blood cell count increased [Not Recovered/Not Resolved]
  - Blood creatinine decreased [Unknown]
  - Eosinophil count decreased [Unknown]

NARRATIVE: CASE EVENT DATE: 20201127
